FAERS Safety Report 13094876 (Version 2)
Quarter: 2017Q1

REPORT INFORMATION
  Report Type: Report from Study
  Country: ES (occurrence: ES)
  Receive Date: 20170106
  Receipt Date: 20170116
  Transmission Date: 20170428
  Serious: Yes (Other)
  Sender: FDA-Public Use
  Company Number: ES-GILEAD-2017-0252109

PATIENT
  Age: 56 Year
  Sex: Male

DRUGS (14)
  1. METHADONE [Concomitant]
     Active Substance: METHADONE HYDROCHLORIDE
  2. RIBAVIRINA [Suspect]
     Active Substance: RIBAVIRIN
     Indication: PRODUCT USED FOR UNKNOWN INDICATION
     Route: 048
     Dates: start: 20150623, end: 20150929
  3. NORVIR [Concomitant]
     Active Substance: RITONAVIR
     Dosage: 100 MG, QD
  4. KIVEXA [Concomitant]
     Active Substance: ABACAVIR SULFATE\LAMIVUDINE
     Dosage: 1 DF, UNK
  5. SEGURIL [Concomitant]
     Active Substance: FUROSEMIDE
     Dosage: 1 UNK, UNK
  6. RANITIDINE. [Concomitant]
     Active Substance: RANITIDINE
     Dosage: 300 MG, QD
  7. FOLAXIN                            /00024201/ [Concomitant]
     Dosage: 7.5 MG, Q1WK
  8. LORAMET [Concomitant]
     Active Substance: LORMETAZEPAM
     Dosage: 2 MG, UNK
  9. SOFOSBUVIR [Suspect]
     Active Substance: SOFOSBUVIR
     Indication: PRODUCT USED FOR UNKNOWN INDICATION
     Dosage: 400 MG, UNK
     Route: 048
     Dates: start: 20150623, end: 20150929
  10. PREZISTA [Concomitant]
     Active Substance: DARUNAVIR ETHANOLATE
     Dosage: 800 MG, UNK
  11. SEPTRIN [Concomitant]
     Active Substance: SULFAMETHOXAZOLE\TRIMETHOPRIM
     Dosage: 1 DF, QOD
  12. TRANKIMAZIN [Concomitant]
     Active Substance: ALPRAZOLAM
     Dosage: 2 MG, QD
  13. DAKLINZA [Suspect]
     Active Substance: DACLATASVIR
     Indication: PRODUCT USED FOR UNKNOWN INDICATION
     Dosage: 30 MG, UNK
     Route: 048
     Dates: start: 20150623, end: 20150929
  14. HYDROXYLYSINE [Concomitant]
     Dosage: 1 DF, QD

REACTIONS (1)
  - Hyperbilirubinaemia [Recovered/Resolved]

NARRATIVE: CASE EVENT DATE: 20150707
